FAERS Safety Report 18144775 (Version 1)
Quarter: 2020Q3

REPORT INFORMATION
  Report Type: Spontaneous
  Country: GB (occurrence: GB)
  Receive Date: 20200813
  Receipt Date: 20200813
  Transmission Date: 20201103
  Serious: Yes (Other)
  Sender: FDA-Public Use
  Company Number: GB-LUPIN PHARMACEUTICALS INC.-2020-04740

PATIENT
  Sex: Female

DRUGS (3)
  1. CABERGOLINE. [Suspect]
     Active Substance: CABERGOLINE
     Indication: PARKINSON^S DISEASE
     Dosage: UNK (WITHHELD)
     Route: 065
  2. MADOPAR [Suspect]
     Active Substance: BENSERAZIDE HYDROCHLORIDE\LEVODOPA
     Indication: PARKINSON^S DISEASE
     Dosage: UNK
     Route: 065
  3. ORPHENADRINE [Suspect]
     Active Substance: ORPHENADRINE
     Indication: PARKINSON^S DISEASE
     Dosage: UNK (WITHHELD)
     Route: 065

REACTIONS (3)
  - Tremor [Unknown]
  - Exposure during pregnancy [Unknown]
  - Stillbirth [Unknown]
